FAERS Safety Report 9809393 (Version 1)
Quarter: 2014Q1

REPORT INFORMATION
  Report Type: Spontaneous
  Country: IN (occurrence: IN)
  Receive Date: 20140110
  Receipt Date: 20140110
  Transmission Date: 20141002
  Serious: Yes (Hospitalization)
  Sender: FDA-Public Use
  Company Number: PHHY2014IN002325

PATIENT
  Age: 69 Year
  Sex: Male

DRUGS (6)
  1. LEVOFLOXACIN [Suspect]
     Indication: PYREXIA
     Dosage: 1 DF, BID
  2. LEVOFLOXACIN [Suspect]
     Indication: DIARRHOEA
  3. FURAZOLIDONE [Suspect]
     Indication: PYREXIA
     Dosage: 1 DF, TID
  4. FURAZOLIDONE [Suspect]
     Indication: DIARRHOEA
  5. RABEPRAZOLE [Concomitant]
     Indication: PYREXIA
     Dosage: 1 DF, QD
  6. RABEPRAZOLE [Concomitant]
     Indication: DIARRHOEA

REACTIONS (8)
  - Dysphagia [Recovered/Resolved]
  - Toxic epidermal necrolysis [Recovered/Resolved]
  - Rash generalised [Recovered/Resolved]
  - Eye inflammation [Recovered/Resolved]
  - Pain [Recovered/Resolved]
  - Skin erosion [Recovered/Resolved]
  - Skin exfoliation [Recovered/Resolved]
  - Mouth ulceration [Recovered/Resolved]
